FAERS Safety Report 12384602 (Version 1)
Quarter: 2016Q2

REPORT INFORMATION
  Report Type: Spontaneous
  Country: US (occurrence: None)
  Receive Date: 20160518
  Receipt Date: 20160518
  Transmission Date: 20160815
  Serious: Yes (Other)
  Sender: FDA-Public Use
  Company Number: None

PATIENT
  Age: 73 Year
  Sex: Female
  Weight: 47.17 kg

DRUGS (22)
  1. AMITRIPTYLINE, 25 MG [Suspect]
     Active Substance: AMITRIPTYLINE
     Indication: ASTHENIA
     Route: 048
     Dates: start: 20160203, end: 20160514
  2. DORZOLAMIDE/TIMOLOL/OP [Concomitant]
  3. ALPHAGAN P [Concomitant]
     Active Substance: BRIMONIDINE TARTRATE
  4. SUSTAIN ULTRA [Concomitant]
  5. AMITRIPTYLINE, 25 MG [Suspect]
     Active Substance: AMITRIPTYLINE
     Indication: SLEEP DISORDER
     Route: 048
     Dates: start: 20160203, end: 20160514
  6. SPIRIVA [Concomitant]
     Active Substance: TIOTROPIUM BROMIDE MONOHYDRATE
  7. TYLENOL [Concomitant]
     Active Substance: ACETAMINOPHEN
  8. AZELASTINE [Concomitant]
     Active Substance: AZELASTINE
  9. VITAMIN D3 [Concomitant]
     Active Substance: CHOLECALCIFEROL
  10. VITAMIN D3 [Concomitant]
     Active Substance: CHOLECALCIFEROL
  11. SUSTAIN BALANCE [Concomitant]
  12. LUMIGAN [Concomitant]
     Active Substance: BIMATOPROST
  13. VITAMIN B12 [Concomitant]
     Active Substance: CYANOCOBALAMIN
  14. PROPRANOLOL [Concomitant]
     Active Substance: PROPRANOLOL\PROPRANOLOL HYDROCHLORIDE
  15. SUSTAIN GEL [Concomitant]
  16. AMITRIPTYLINE, 25 MG [Suspect]
     Active Substance: AMITRIPTYLINE
     Indication: HEADACHE
     Route: 048
     Dates: start: 20160203, end: 20160514
  17. TRIAMTERENE HCTZ [Concomitant]
     Active Substance: HYDROCHLOROTHIAZIDE\TRIAMTERENE
  18. CRESTOR [Concomitant]
     Active Substance: ROSUVASTATIN CALCIUM
  19. CALCIUM [Concomitant]
     Active Substance: CALCIUM
  20. SALINE NASAL SPRAY [Concomitant]
     Active Substance: SODIUM CHLORIDE
  21. BUDESONIDE. [Concomitant]
     Active Substance: BUDESONIDE
  22. VITAMIN 5 [Concomitant]

REACTIONS (7)
  - Dry mouth [None]
  - Vision blurred [None]
  - Weight increased [None]
  - Photosensitivity reaction [None]
  - Pruritus [None]
  - Dry eye [None]
  - Glaucoma [None]

NARRATIVE: CASE EVENT DATE: 20160210
